FAERS Safety Report 19536665 (Version 1)
Quarter: 2021Q3

REPORT INFORMATION
  Report Type: Spontaneous
  Country: IT (occurrence: IT)
  Receive Date: 20210714
  Receipt Date: 20210714
  Transmission Date: 20211014
  Serious: Yes (Hospitalization, Other)
  Sender: FDA-Public Use
  Company Number: IT-IPCA LABORATORIES LIMITED-IPC-2021-IT-001335

PATIENT

DRUGS (5)
  1. LACIDIPINE [Suspect]
     Active Substance: LACIDIPINE
  2. FLUOXETINE [Suspect]
     Active Substance: FLUOXETINE HYDROCHLORIDE
     Indication: PRODUCT USED FOR UNKNOWN INDICATION
     Dosage: UNK
     Route: 065
  3. SERTRALINE [Suspect]
     Active Substance: SERTRALINE HYDROCHLORIDE
     Indication: PRODUCT USED FOR UNKNOWN INDICATION
     Dosage: UNK
     Route: 065
  4. ATENOLOL. [Suspect]
     Active Substance: ATENOLOL
     Indication: PRODUCT USED FOR UNKNOWN INDICATION
     Dosage: 10 GRAM
     Route: 065
  5. NIFEDIPINE. [Suspect]
     Active Substance: NIFEDIPINE
     Indication: PRODUCT USED FOR UNKNOWN INDICATION
     Dosage: UNK
     Route: 065

REACTIONS (29)
  - Dyspnoea [Recovered/Resolved]
  - Shock [Recovered/Resolved]
  - Renal failure [Recovered/Resolved]
  - Sinus bradycardia [Recovered/Resolved]
  - Arrhythmia [Recovered/Resolved]
  - Ataxia [Not Recovered/Not Resolved]
  - Rhabdomyolysis [Recovered/Resolved]
  - Hyperkalaemia [Recovered/Resolved]
  - Blood potassium decreased [Recovered/Resolved]
  - Aphasia [Not Recovered/Not Resolved]
  - Intentional overdose [Unknown]
  - Electrocardiogram QT prolonged [Recovered/Resolved]
  - Electrocardiogram QRS complex prolonged [Recovered/Resolved]
  - Cardiac arrest [Recovered/Resolved]
  - Metabolic acidosis [Recovered/Resolved]
  - Haemodynamic instability [Recovered/Resolved]
  - Cardiac failure [Recovered/Resolved]
  - Myoglobinuria [Recovered/Resolved]
  - Hypokinesia [Not Recovered/Not Resolved]
  - Hypotension [Recovered/Resolved]
  - Renal impairment [Recovered/Resolved]
  - Left ventricular hypertrophy [Recovered/Resolved]
  - Hypoxia [Recovered/Resolved]
  - Toxicity to various agents [Recovered/Resolved]
  - Multiple organ dysfunction syndrome [Recovered/Resolved]
  - Coordination abnormal [Not Recovered/Not Resolved]
  - Loss of consciousness [Recovered/Resolved]
  - Pulmonary oedema [Recovered/Resolved]
  - Myoglobinaemia [Recovered/Resolved]
